FAERS Safety Report 18181397 (Version 2)
Quarter: 2020Q3

REPORT INFORMATION
  Report Type: Report from Study
  Country: US (occurrence: US)
  Receive Date: 20200821
  Receipt Date: 20200915
  Transmission Date: 20201103
  Serious: Yes (Death, Other)
  Sender: FDA-Public Use
  Company Number: US-SHIRE-US202027036

PATIENT
  Age: 58 Year
  Sex: Female
  Weight: 41.81 kg

DRUGS (8)
  1. GATTEX [Suspect]
     Active Substance: TEDUGLUTIDE\WATER
     Indication: SHORT-BOWEL SYNDROME
     Dosage: 0.209 MILLILITER, 1X/DAY:QD
     Route: 058
     Dates: start: 20200807
  2. GATTEX [Suspect]
     Active Substance: TEDUGLUTIDE\WATER
     Dosage: 0.209 MILLILITER, 1X/DAY:QD
     Route: 065
  3. GATTEX [Suspect]
     Active Substance: TEDUGLUTIDE\WATER
     Dosage: 0.209 MILLILITER, 1X/DAY:QD
     Route: 065
  4. GATTEX [Suspect]
     Active Substance: TEDUGLUTIDE\WATER
     Indication: SHORT-BOWEL SYNDROME
     Dosage: 0.209 MILLILITER, 1X/DAY:QD
     Route: 058
     Dates: start: 20200807
  5. GATTEX [Suspect]
     Active Substance: TEDUGLUTIDE\WATER
     Indication: SHORT-BOWEL SYNDROME
     Dosage: 0.209 MILLILITER, 1X/DAY:QD
     Route: 058
     Dates: start: 20200807
  6. GATTEX [Suspect]
     Active Substance: TEDUGLUTIDE\WATER
     Dosage: 0.209 MILLILITER, 1X/DAY:QD
     Route: 065
  7. GATTEX [Suspect]
     Active Substance: TEDUGLUTIDE\WATER
     Dosage: 0.209 MILLILITER, 1X/DAY:QD
     Route: 065
  8. GATTEX [Suspect]
     Active Substance: TEDUGLUTIDE\WATER
     Indication: SHORT-BOWEL SYNDROME
     Dosage: 0.209 MILLILITER, 1X/DAY:QD
     Route: 058
     Dates: start: 20200807

REACTIONS (2)
  - Malnutrition [Fatal]
  - Gastrointestinal disorder [Fatal]

NARRATIVE: CASE EVENT DATE: 20200818
